FAERS Safety Report 9705333 (Version 2)
Quarter: 2013Q4

REPORT INFORMATION
  Report Type: Spontaneous
  Country: US (occurrence: US)
  Receive Date: 20131122
  Receipt Date: 20131210
  Transmission Date: 20140711
  Serious: Yes (Hospitalization, Other)
  Sender: FDA-Public Use
  Company Number: US-BAXTER-2013BAX045702

PATIENT
  Age: 75 Year
  Sex: Male
  Weight: 78.09 kg

DRUGS (4)
  1. DIANEAL LOW CALCIUM [Suspect]
     Indication: CONGENITAL CYSTIC KIDNEY DISEASE
     Route: 033
     Dates: start: 20130901
  2. DIANEAL LOW CALCIUM [Suspect]
     Indication: CONGENITAL CYSTIC KIDNEY DISEASE
     Route: 033
     Dates: start: 20130901
  3. DIANEAL LOW CALCIUM (ULTRABAG) [Suspect]
     Indication: RENAL FAILURE CHRONIC
     Route: 033
     Dates: start: 201306
  4. RISPERDAL [Suspect]
     Indication: DELUSION
     Route: 048
     Dates: start: 20131028, end: 20131104

REACTIONS (5)
  - Heart rate increased [Not Recovered/Not Resolved]
  - Hypothyroidism [Unknown]
  - Blood cortisol decreased [Unknown]
  - Hypotension [Not Recovered/Not Resolved]
  - Dehydration [Unknown]
